FAERS Safety Report 5422800-1 (Version None)
Quarter: 2007Q3

REPORT INFORMATION
  Report Type: 
  Country: None (occurrence: None)
  Receive Date: 20070730
  Receipt Date: 20060710
  Transmission Date: 20080115
  Serious: Yes (Life-Threatening, Hospitalization)
  Sender: FDA-Public Use
  Company Number: 200610430BWH

PATIENT
  Age: 46 Year
  Sex: Female
  Weight: 75.7507 kg

DRUGS (9)
  1. AVELOX [Suspect]
     Indication: BRONCHITIS
     Dosage: 400 MG, ONCE; ORAL
     Route: 048
     Dates: start: 20060112
  2. AVELOX [Suspect]
     Indication: SINUSITIS
     Dosage: 400 MG, ONCE; ORAL
     Route: 048
     Dates: start: 20060112
  3. AVELOX [Suspect]
     Indication: UPPER RESPIRATORY TRACT INFECTION
     Dosage: 400 MG, ONCE; ORAL
     Route: 048
     Dates: start: 20060112
  4. ALBUTEROL [Concomitant]
  5. FEXOFENADINE HCL [Concomitant]
  6. EFFEXOR XR [Concomitant]
  7. ACIPHEX [Concomitant]
  8. LISINOPRIL [Concomitant]
  9. ADVAIR DISKUS 100/50 [Concomitant]

REACTIONS (10)
  - ANAPHYLACTIC SHOCK [None]
  - CARDIAC ARREST [None]
  - CHEST PAIN [None]
  - COMA [None]
  - DYSPNOEA [None]
  - FEELING ABNORMAL [None]
  - RASH [None]
  - SKIN INFLAMMATION [None]
  - SWELLING [None]
  - URTICARIA [None]
